FAERS Safety Report 18811773 (Version 1)
Quarter: 2021Q1

REPORT INFORMATION
  Report Type: Spontaneous
  Country: US (occurrence: US)
  Receive Date: 20210130
  Receipt Date: 20210130
  Transmission Date: 20210419
  Serious: No
  Sender: FDA-Public Use
  Company Number: US-ASTRAZENECA-2021A012579

PATIENT
  Age: 754 Month
  Sex: Female
  Weight: 83.9 kg

DRUGS (1)
  1. ROSUVASTATIN. [Suspect]
     Active Substance: ROSUVASTATIN
     Indication: BLOOD CHOLESTEROL INCREASED
     Route: 048
     Dates: start: 201912

REACTIONS (2)
  - Insomnia [Unknown]
  - Product substitution issue [Unknown]

NARRATIVE: CASE EVENT DATE: 202012
